FAERS Safety Report 5985066-X (Version None)
Quarter: 2008Q4

REPORT INFORMATION
  Report Type: 
  Country: None (occurrence: None)
  Receive Date: 20081208
  Receipt Date: 20080523
  Transmission Date: 20090506
  Serious: Yes (Other)
  Sender: FDA-Public Use
  Company Number: US-AMGEN-QUU282142

PATIENT
  Sex: Female

DRUGS (2)
  1. ENBREL [Suspect]
     Indication: RHEUMATOID ARTHRITIS
     Route: 058
     Dates: start: 20060201
  2. METHOTREXATE [Concomitant]

REACTIONS (5)
  - BASAL CELL CARCINOMA [None]
  - FALL [None]
  - LIGAMENT RUPTURE [None]
  - MENISCUS LESION [None]
  - TIBIA FRACTURE [None]
